FAERS Safety Report 21870881 (Version 1)
Quarter: 2023Q1

REPORT INFORMATION
  Report Type: Report from Study
  Country: US (occurrence: US)
  Receive Date: 20230117
  Receipt Date: 20230117
  Transmission Date: 20230418
  Serious: No
  Sender: FDA-Public Use
  Company Number: US-ABBVIE-4238790

PATIENT
  Sex: Female

DRUGS (2)
  1. SKYRIZI [Suspect]
     Active Substance: RISANKIZUMAB-RZAA
     Indication: Psoriasis
     Dosage: WEEK 4 AND EVERY 12 WEEKS THEREAFTER?FORM STRENGTH: 150 MILLIGRAM
     Route: 058
     Dates: start: 202212
  2. SKYRIZI [Suspect]
     Active Substance: RISANKIZUMAB-RZAA
     Dosage: WEEK 0?FORM STRENGTH: 150 MILLIGRAM
     Route: 058
     Dates: start: 20221109, end: 20221109

REACTIONS (3)
  - Psoriatic arthropathy [Unknown]
  - Sleep apnoea syndrome [Unknown]
  - Diabetes mellitus [Unknown]
